FAERS Safety Report 7153027-3 (Version None)
Quarter: 2010Q4

REPORT INFORMATION
  Report Type: 
  Country: None (occurrence: None)
  Receive Date: 20101213
  Receipt Date: 20101201
  Transmission Date: 20110411
  Serious: Yes (Other)
  Sender: FDA-Public Use
  Company Number: TH-MPIJNJ-2010-06006

PATIENT

DRUGS (3)
  1. VELCADE [Suspect]
     Indication: PRODUCT USED FOR UNKNOWN INDICATION
     Dosage: UNK
     Route: 065
  2. MELPHALAN HYDROCHLORIDE [Concomitant]
  3. PREDNISOLONE [Concomitant]

REACTIONS (1)
  - BRAIN NATRIURETIC PEPTIDE INCREASED [None]
